FAERS Safety Report 15630177 (Version 2)
Quarter: 2019Q1

REPORT INFORMATION
  Report Type: Spontaneous
  Country: ES (occurrence: ES)
  Receive Date: 20181118
  Receipt Date: 20190211
  Transmission Date: 20190417
  Serious: Yes (Life-Threatening, Hospitalization, Other)
  Sender: FDA-Public Use
  Company Number: PHHY2018ES147358

PATIENT
  Age: 45 Year
  Sex: Male

DRUGS (1)
  1. CAPTOPRIL. [Suspect]
     Active Substance: CAPTOPRIL
     Indication: HYPERTENSION
     Dosage: 25 MG, UNK
     Route: 065

REACTIONS (16)
  - Vomiting [Recovered/Resolved]
  - Anaphylactic shock [Unknown]
  - Respiratory distress [Unknown]
  - Oral pruritus [Unknown]
  - Face oedema [Unknown]
  - Lip swelling [Recovered/Resolved]
  - Discomfort [Unknown]
  - Localised oedema [Recovered/Resolved]
  - Sinus tachycardia [Unknown]
  - Dysphagia [Unknown]
  - Pyrexia [Unknown]
  - Hypersensitivity [Unknown]
  - Dyspnoea [Recovering/Resolving]
  - Tachypnoea [Unknown]
  - Angioedema [Recovered/Resolved]
  - Mouth swelling [Recovered/Resolved]
